FAERS Safety Report 8595943-1 (Version None)
Quarter: 2012Q3

REPORT INFORMATION
  Report Type: 
  Country: None (occurrence: None)
  Receive Date: 20120815
  Receipt Date: 20120806
  Transmission Date: 20120928
  Serious: No
  Sender: FDA-Public Use
  Company Number: US-ASTRAZENECA-2012SE55456

PATIENT
  Sex: Female

DRUGS (4)
  1. WELLBUTRIN [Concomitant]
  2. SEROQUEL XR [Suspect]
     Indication: MAJOR DEPRESSION
     Route: 048
  3. STRATTTERA [Concomitant]
  4. KIDNEY MEDICATION [Concomitant]

REACTIONS (3)
  - MALAISE [None]
  - INCREASED APPETITE [None]
  - FATIGUE [None]
